FAERS Safety Report 16004606 (Version 1)
Quarter: 2019Q1

REPORT INFORMATION
  Report Type: Spontaneous
  Country: US (occurrence: US)
  Receive Date: 20190225
  Receipt Date: 20190225
  Transmission Date: 20190418
  Serious: No
  Sender: FDA-Public Use
  Company Number: None

PATIENT
  Sex: Female

DRUGS (1)
  1. PRISTIQ EXTENDED-RELEASE [Suspect]
     Active Substance: DESVENLAFAXINE SUCCINATE

REACTIONS (7)
  - Sneezing [None]
  - Hypersensitivity [None]
  - Insomnia [None]
  - Mood swings [None]
  - Anorgasmia [None]
  - Acne [None]
  - Hyperhidrosis [None]
